FAERS Safety Report 9335533 (Version 1)
Quarter: 2013Q2

REPORT INFORMATION
  Report Type: Spontaneous
  Country: JP (occurrence: JP)
  Receive Date: 20130605
  Receipt Date: 20130605
  Transmission Date: 20140414
  Serious: Yes (Hospitalization, Disabling)
  Sender: FDA-Public Use
  Company Number: JP-VIIV HEALTHCARE LIMITED-B0557975A

PATIENT
  Age: 48 Year
  Sex: Male

DRUGS (11)
  1. COMBIVIR [Suspect]
     Indication: ACQUIRED IMMUNODEFICIENCY SYNDROME
     Route: 048
     Dates: start: 20061221, end: 20070305
  2. EPZICOM [Suspect]
     Indication: ACQUIRED IMMUNODEFICIENCY SYNDROME
     Route: 048
     Dates: start: 20070305
  3. KALETRA [Suspect]
     Indication: ACQUIRED IMMUNODEFICIENCY SYNDROME
     Route: 048
     Dates: start: 20061221
  4. ZITHROMAC [Concomitant]
     Indication: OPPORTUNISTIC INFECTION PROPHYLAXIS
     Route: 048
     Dates: start: 20061019, end: 20070603
  5. BAKTAR [Concomitant]
     Indication: ANTIFUNGAL PROPHYLAXIS
     Dosage: 1IUAX PER DAY
     Route: 048
     Dates: start: 20061019, end: 20080406
  6. SULFADOXINE PYRIMETHAMINE [Concomitant]
     Indication: CEREBRAL TOXOPLASMOSIS
     Dosage: 200MG PER DAY
     Route: 048
     Dates: start: 20061025, end: 20061025
  7. SULFADOXINE PYRIMETHAMINE [Concomitant]
     Indication: CEREBRAL TOXOPLASMOSIS
     Dosage: 200MG PER DAY
     Route: 048
     Dates: start: 20061026, end: 20061220
  8. SULFADOXINE PYRIMETHAMINE [Concomitant]
     Indication: CEREBRAL TOXOPLASMOSIS
     Dosage: 200MG PER DAY
     Route: 048
     Dates: start: 20061221, end: 20080406
  9. CLINDAMYCIN [Concomitant]
     Indication: CEREBRAL TOXOPLASMOSIS
     Dosage: 1200MG TWICE PER DAY
     Dates: start: 20061025, end: 20061220
  10. CLINDAMYCIN [Concomitant]
     Indication: CEREBRAL TOXOPLASMOSIS
     Dosage: 600MG TWICE PER DAY
     Dates: start: 20061220, end: 20080406
  11. RALTEGRAVIR POTASSIUM [Concomitant]
     Route: 048

REACTIONS (5)
  - Femoral neck fracture [Recovering/Resolving]
  - Femoral neck fracture [Recovering/Resolving]
  - Osteoporosis [Unknown]
  - Arthralgia [Unknown]
  - Anaemia [Recovering/Resolving]
